FAERS Safety Report 11594249 (Version 1)
Quarter: 2015Q4

REPORT INFORMATION
  Report Type: Report from Study
  Country: JP (occurrence: JP)
  Receive Date: 20151005
  Receipt Date: 20151005
  Transmission Date: 20160304
  Serious: Yes (Other)
  Sender: FDA-Public Use
  Company Number: PHJP2015JP016780

PATIENT
  Age: 24 Year
  Sex: Female

DRUGS (31)
  1. CLOZARIL [Suspect]
     Active Substance: CLOZAPINE
     Dosage: 200 MG, QD
     Route: 048
     Dates: start: 20100719, end: 20100721
  2. CLOZARIL [Suspect]
     Active Substance: CLOZAPINE
     Dosage: 300 MG, QD
     Route: 048
     Dates: start: 20110701, end: 20120312
  3. BIPERIDEN [Concomitant]
     Active Substance: BIPERIDEN
     Dosage: 2 MG, QD
     Route: 048
     Dates: start: 20100723, end: 20100909
  4. PICOSULFATE DE SODIUM [Concomitant]
     Indication: CONSTIPATION
     Dosage: 1 ML, PRN
     Route: 048
     Dates: start: 20100630, end: 20100930
  5. LORAZEPAM. [Concomitant]
     Active Substance: LORAZEPAM
     Indication: RESTLESSNESS
     Dosage: 0.5 MG, PRN
     Route: 048
     Dates: start: 20100630, end: 20100930
  6. CLOZARIL [Suspect]
     Active Substance: CLOZAPINE
     Dosage: 100 MG, QD
     Route: 048
     Dates: start: 20100709, end: 20100710
  7. CLOZARIL [Suspect]
     Active Substance: CLOZAPINE
     Dosage: 300 MG, QD
     Route: 048
     Dates: start: 20100729, end: 20100804
  8. CLOZARIL [Suspect]
     Active Substance: CLOZAPINE
     Dosage: 300 MG, QD
     Route: 048
     Dates: start: 20100806, end: 20100811
  9. LOXOPROFEN [Concomitant]
     Active Substance: LOXOPROFEN
     Indication: HEADACHE
     Dosage: 60 MG, PRN
     Route: 048
     Dates: start: 20100630, end: 20100930
  10. CLOZARIL [Suspect]
     Active Substance: CLOZAPINE
     Dosage: 50 MG, QD
     Route: 048
     Dates: start: 20100704, end: 20100706
  11. CLOZARIL [Suspect]
     Active Substance: CLOZAPINE
     Dosage: 350 MG, QD
     Route: 048
     Dates: start: 20100805, end: 20100805
  12. REBAMIPIDE [Concomitant]
     Active Substance: REBAMIPIDE
     Indication: HEADACHE
     Dosage: 100 MG, PRN
     Route: 048
     Dates: start: 20100630, end: 20100930
  13. LOXONIN [Concomitant]
     Active Substance: LOXOPROFEN SODIUM
     Indication: HEADACHE
     Dosage: 60 MG, QD
     Route: 065
     Dates: start: 20110909, end: 20120630
  14. CLOZARIL [Suspect]
     Active Substance: CLOZAPINE
     Dosage: 150 MG, QD
     Route: 048
     Dates: start: 20100713, end: 20100715
  15. CLOZARIL [Suspect]
     Active Substance: CLOZAPINE
     Dosage: 250 MG, QD
     Route: 048
     Dates: start: 20100722, end: 20100728
  16. CLOZARIL [Suspect]
     Active Substance: CLOZAPINE
     Dosage: 250 MG, QD
     Route: 048
     Dates: start: 20100812, end: 20100915
  17. CLOZARIL [Suspect]
     Active Substance: CLOZAPINE
     Dosage: 275 MG, QD
     Route: 048
     Dates: start: 20100916, end: 20100930
  18. AROTINOLOL HCL [Concomitant]
     Indication: TREMOR
     Dosage: 10 MG, QD
     Route: 048
     Dates: start: 20100630, end: 20100930
  19. CLOZARIL [Suspect]
     Active Substance: CLOZAPINE
     Dosage: 25 MG, QD
     Route: 048
     Dates: start: 20100701, end: 20100703
  20. CLOZARIL [Suspect]
     Active Substance: CLOZAPINE
     Dosage: 350 MG, QD
     Route: 048
     Dates: start: 20120316, end: 20120405
  21. BROTIZOLAM [Concomitant]
     Active Substance: BROTIZOLAM
     Indication: INSOMNIA
     Dosage: 0.25 MG, PRN
     Route: 048
     Dates: start: 20100630, end: 20100930
  22. CLOZARIL [Suspect]
     Active Substance: CLOZAPINE
     Dosage: 325 MG, QD
     Route: 048
     Dates: start: 20120313, end: 20120315
  23. BIPERIDEN [Concomitant]
     Active Substance: BIPERIDEN
     Indication: EXTRAPYRAMIDAL DISORDER
     Dosage: 3 MG, QD
     Route: 048
     Dates: start: 20100630, end: 20100722
  24. CLOZARIL [Suspect]
     Active Substance: CLOZAPINE
     Dosage: 75 MG, QD
     Route: 048
     Dates: start: 20100707, end: 20100708
  25. CLOZARIL [Suspect]
     Active Substance: CLOZAPINE
     Dosage: 400 MG, QD
     Route: 048
     Dates: start: 20120406
  26. CLOZARIL [Suspect]
     Active Substance: CLOZAPINE
     Indication: SCHIZOPHRENIA
     Dosage: 12.5 MG, QD
     Route: 048
     Dates: start: 20100630, end: 20100630
  27. CLOZARIL [Suspect]
     Active Substance: CLOZAPINE
     Dosage: 125 MG, QD
     Route: 048
     Dates: start: 20100711, end: 20100712
  28. CLOZARIL [Suspect]
     Active Substance: CLOZAPINE
     Dosage: 175 MG, QD
     Route: 048
     Dates: start: 20100716, end: 20100718
  29. BIPERIDEN [Concomitant]
     Active Substance: BIPERIDEN
     Dosage: 1 MG, QD
     Route: 048
     Dates: start: 20100910
  30. AROTINOLOL HCL [Concomitant]
     Dosage: 5 MG, QD
     Route: 048
     Dates: start: 20110701, end: 20120630
  31. MAGLAX [Concomitant]
     Active Substance: MAGNESIUM OXIDE
     Indication: PRODUCT USED FOR UNKNOWN INDICATION
     Dosage: 2000 MG, QD
     Route: 065
     Dates: start: 20120330, end: 20120630

REACTIONS (1)
  - Mastitis [Recovered/Resolved]

NARRATIVE: CASE EVENT DATE: 20120606
